FAERS Safety Report 13680791 (Version 1)
Quarter: 2017Q2

REPORT INFORMATION
  Report Type: Spontaneous
  Country: US (occurrence: US)
  Receive Date: 20170623
  Receipt Date: 20170623
  Transmission Date: 20170830
  Serious: Yes (Other)
  Sender: FDA-Public Use
  Company Number: US-MACLEODS PHARMACEUTICALS US LTD-MAC2017005247

PATIENT

DRUGS (1)
  1. LEVOFLOXACIN. [Suspect]
     Active Substance: LEVOFLOXACIN
     Indication: PRODUCT USED FOR UNKNOWN INDICATION
     Dosage: UNK
     Route: 065

REACTIONS (7)
  - Dysmetria [Unknown]
  - Nervous system disorder [Unknown]
  - Time perception altered [Unknown]
  - Neurological examination abnormal [Unknown]
  - Disturbance in attention [Unknown]
  - Cognitive disorder [Unknown]
  - Disorientation [Unknown]
